FAERS Safety Report 9169503 (Version 2)
Quarter: 2013Q2

REPORT INFORMATION
  Report Type: Spontaneous
  Country: GB (occurrence: GB)
  Receive Date: 20130318
  Receipt Date: 20130523
  Transmission Date: 20140414
  Serious: Yes (Other)
  Sender: FDA-Public Use
  Company Number: GB-TEVA-392236ISR

PATIENT
  Sex: Female

DRUGS (1)
  1. TRAMADOL [Suspect]
     Indication: PAIN
     Dosage: STRENGHT: 50 MG;8 TABETS IN TOTAL, 1 PER NIGHT.
     Route: 065
     Dates: start: 201211

REACTIONS (8)
  - Depressed mood [Unknown]
  - Influenza like illness [Not Recovered/Not Resolved]
  - Sleep disorder [Unknown]
  - Paraesthesia [Not Recovered/Not Resolved]
  - Burning sensation [Unknown]
  - Rash pruritic [Unknown]
  - Drug ineffective [Unknown]
  - Withdrawal syndrome [Unknown]
